FAERS Safety Report 5778120-9 (Version None)
Quarter: 2008Q2

REPORT INFORMATION
  Report Type: 
  Country: None (occurrence: None)
  Receive Date: 20080617
  Receipt Date: 20080605
  Transmission Date: 20081010
  Serious: Yes (Hospitalization)
  Sender: FDA-Public Use
  Company Number: 235429J08USA

PATIENT
  Age: 46 Year
  Sex: Female

DRUGS (1)
  1. REBIF [Suspect]
     Indication: MULTIPLE SCLEROSIS
     Dosage: 44 MCG, 3 IN 1 WEEKS, SUBCUTANEOUS
     Route: 058
     Dates: start: 20080408

REACTIONS (10)
  - ABASIA [None]
  - ARTHROPATHY [None]
  - ASTHENIA [None]
  - CONSTIPATION [None]
  - FATIGUE [None]
  - MUSCULOSKELETAL STIFFNESS [None]
  - NECK DEFORMITY [None]
  - OEDEMA PERIPHERAL [None]
  - URINARY RETENTION [None]
  - WALKING AID USER [None]
